FAERS Safety Report 7963529-5 (Version None)
Quarter: 2011Q4

REPORT INFORMATION
  Report Type: 
  Country: None (occurrence: None)
  Receive Date: 20111208
  Receipt Date: 20111207
  Transmission Date: 20120403
  Serious: Yes (Hospitalization)
  Sender: FDA-Public Use
  Company Number: IT-BAYER-2011-117014

PATIENT
  Age: 83 Year
  Sex: Male

DRUGS (3)
  1. ASPIRIN [Suspect]
     Indication: PLATELET AGGREGATION INHIBITION
     Dosage: 100 MG, QD
     Route: 048
     Dates: start: 20110101, end: 20111106
  2. TICLOPIDINE HCL [Suspect]
     Indication: PLATELET AGGREGATION INHIBITION
     Dosage: DAILY DOSE 500 ?G
     Route: 048
     Dates: start: 20110101, end: 20111106
  3. BRANIGEN [Concomitant]

REACTIONS (2)
  - ANAEMIA [None]
  - MELAENA [None]
